FAERS Safety Report 5715238-0 (Version None)
Quarter: 2008Q2

REPORT INFORMATION
  Report Type: 
  Country: None (occurrence: None)
  Receive Date: 20080423
  Receipt Date: 20080411
  Transmission Date: 20081010
  Serious: Yes (Hospitalization, Other)
  Sender: FDA-Public Use
  Company Number: PFIZER INC-2007069336

PATIENT
  Sex: Female
  Weight: 76.2 kg

DRUGS (3)
  1. NEURONTIN [Suspect]
     Indication: NEUROPATHY PERIPHERAL
     Dosage: DAILY DOSE:1800MG
     Dates: start: 20010601, end: 20060101
  2. MORPHINE [Concomitant]
  3. METHADONE HCL [Concomitant]
     Indication: PAIN

REACTIONS (18)
  - ACTIVITIES OF DAILY LIVING IMPAIRED [None]
  - AMNESIA [None]
  - BLOOD THYROID STIMULATING HORMONE INCREASED [None]
  - BRAIN INJURY [None]
  - COGNITIVE DISORDER [None]
  - CORNEAL REFLEX DECREASED [None]
  - DIARRHOEA [None]
  - EXPRESSIVE LANGUAGE DISORDER [None]
  - FEELING ABNORMAL [None]
  - GAIT DISTURBANCE [None]
  - HALLUCINATION [None]
  - HEART RATE IRREGULAR [None]
  - NARCOLEPSY [None]
  - NEUROPATHY PERIPHERAL [None]
  - PERSONALITY DISORDER [None]
  - THYROID DISORDER [None]
  - VOMITING [None]
  - WEIGHT INCREASED [None]
